FAERS Safety Report 8441149-6 (Version None)
Quarter: 2012Q2

REPORT INFORMATION
  Report Type: 
  Country: None (occurrence: None)
  Receive Date: 20120615
  Receipt Date: 20110711
  Transmission Date: 20120825
  Serious: No
  Sender: FDA-Public Use
  Company Number: US-NOVEN-11US002770

PATIENT
  Sex: Male

DRUGS (1)
  1. DAYTRANA [Suspect]
     Indication: ATTENTION DEFICIT/HYPERACTIVITY DISORDER
     Dosage: 1 PATCH DAILY
     Route: 062
     Dates: start: 20100101

REACTIONS (3)
  - PRODUCT QUALITY ISSUE [None]
  - STRESS [None]
  - INCORRECT DRUG ADMINISTRATION DURATION [None]
